FAERS Safety Report 11648565 (Version 2)
Quarter: 2015Q4

REPORT INFORMATION
  Report Type: Spontaneous
  Country: PL (occurrence: PL)
  Receive Date: 20151021
  Receipt Date: 20151125
  Transmission Date: 20160304
  Serious: Yes (Other)
  Sender: FDA-Public Use
  Company Number: PL-ROCHE-1648544

PATIENT
  Age: 32 Year
  Sex: Male

DRUGS (5)
  1. OXALIPLATIN. [Concomitant]
     Active Substance: OXALIPLATIN
  2. AVASTIN [Suspect]
     Active Substance: BEVACIZUMAB
     Indication: COLORECTAL ADENOCARCINOMA
     Route: 065
     Dates: start: 2015
  3. FLUOROURACIL. [Concomitant]
     Active Substance: FLUOROURACIL
  4. FOLINIC ACID [Concomitant]
     Active Substance: LEUCOVORIN
  5. AVASTIN [Suspect]
     Active Substance: BEVACIZUMAB
     Indication: METASTASES TO LIVER

REACTIONS (1)
  - Metastasis [Unknown]
